FAERS Safety Report 10401653 (Version 1)
Quarter: 2014Q3

REPORT INFORMATION
  Report Type: Spontaneous
  Country: FR (occurrence: None)
  Receive Date: 20140819
  Receipt Date: 20140819
  Transmission Date: 20150326
  Serious: Yes (Other)
  Sender: FDA-Public Use
  Company Number: VAL_03304_2014

PATIENT
  Age: 26 Year
  Sex: Female

DRUGS (2)
  1. BROMOCRIPTINE [Suspect]
     Active Substance: BROMOCRIPTINE
     Indication: SUPPRESSED LACTATION
     Route: 048
  2. TRIMEBUTINE [Concomitant]
     Active Substance: TRIMEBUTINE

REACTIONS (6)
  - Arteriospasm coronary [None]
  - Pericardial effusion [None]
  - Arrhythmia [None]
  - Quadriparesis [None]
  - Myocardial infarction [None]
  - Blindness [None]
